FAERS Safety Report 5777940-4 (Version None)
Quarter: 2008Q2

REPORT INFORMATION
  Report Type: 
  Country: None (occurrence: None)
  Receive Date: 20080618
  Receipt Date: 20080618
  Transmission Date: 20081010
  Serious: Yes (Other)
  Sender: FDA-Public Use
  Company Number: None

PATIENT
  Sex: Male
  Weight: 128.8216 kg

DRUGS (3)
  1. SULFAMETHOXAZOLE AND TRIMETHOPRIM [Suspect]
     Indication: BRONCHOPNEUMONIA
     Dosage: SMX/TMP 800/160 DS  2 X DAILY  047
     Dates: start: 20080327, end: 20080403
  2. LISINOPRIL [Concomitant]
  3. SIMVASTATIN [Concomitant]

REACTIONS (16)
  - ANOREXIA [None]
  - CHILLS [None]
  - DIARRHOEA [None]
  - EOSINOPHIL COUNT INCREASED [None]
  - FATIGUE [None]
  - INSOMNIA [None]
  - PENIS DISORDER [None]
  - PHARYNGOLARYNGEAL PAIN [None]
  - PLATELET COUNT DECREASED [None]
  - PLATELET DISORDER [None]
  - PROSTATIC SPECIFIC ANTIGEN INCREASED [None]
  - PYREXIA [None]
  - TRANSAMINASES INCREASED [None]
  - URETHRAL DISORDER [None]
  - URINE COLOUR ABNORMAL [None]
  - URINE FLOW DECREASED [None]
